FAERS Safety Report 4749884-8 (Version None)
Quarter: 2005Q3

REPORT INFORMATION
  Report Type: 
  Country: None (occurrence: None)
  Receive Date: 20050818
  Receipt Date: 20050801
  Transmission Date: 20060218
  Serious: Yes (Other)
  Sender: FDA-Public Use
  Company Number: CAR_0035_2005

PATIENT
  Age: 32 Year
  Sex: Female

DRUGS (4)
  1. ACYCLOVIR [Suspect]
     Indication: VARICELLA
     Dosage: 800 MG TID PO
     Route: 048
     Dates: start: 20050727, end: 20050728
  2. ACYCLOVIR [Suspect]
     Indication: VARICELLA
     Dosage: 800 MG TID PO
     Route: 048
     Dates: start: 20050730, end: 20050731
  3. PRENATAL VITAMINS [Concomitant]
  4. PROMETRIUM [Concomitant]

REACTIONS (3)
  - DRUG EXPOSURE DURING PREGNANCY [None]
  - METRORRHAGIA [None]
  - PROGESTERONE DECREASED [None]
